FAERS Safety Report 9118338 (Version 2)
Quarter: 2013Q1

REPORT INFORMATION
  Report Type: Spontaneous
  Country: DE (occurrence: None)
  Receive Date: 20130128
  Receipt Date: 20130208
  Transmission Date: 20140127
  Serious: Yes (Life-Threatening, Hospitalization, Disabling)
  Sender: FDA-Public Use
  Company Number: AUR-APL-2013-00857

PATIENT
  Age: 67 Year
  Sex: Female
  Weight: 90 kg

DRUGS (1)
  1. METFORMIN (METFORMIN) [Suspect]
     Indication: TYPE 2 DIABETES MELLITUS
     Dosage: 2000 MG (1000 MG, 2 IN 1D)
     Route: 048

REACTIONS (4)
  - Cardiac arrest [None]
  - Lactic acidosis [None]
  - Resuscitation [None]
  - Dialysis [None]
